FAERS Safety Report 16621454 (Version 1)
Quarter: 2019Q3

REPORT INFORMATION
  Report Type: Spontaneous
  Country: GB (occurrence: GB)
  Receive Date: 20190723
  Receipt Date: 20190723
  Transmission Date: 20191004
  Serious: Yes (Life-Threatening)
  Sender: FDA-Public Use
  Company Number: GB-MYLANLABS-2019M1068930

PATIENT
  Age: 18 Year
  Sex: Male
  Weight: 55 kg

DRUGS (3)
  1. FINASTERIDE. [Suspect]
     Active Substance: FINASTERIDE
     Indication: ALOPECIA
     Dosage: 0.25 MILLIGRAM, Q3D, FOR A WEEK
     Route: 048
     Dates: start: 20190122
  2. FINASTERIDE. [Suspect]
     Active Substance: FINASTERIDE
     Dosage: 0.5 MILLIGRAM, Q3D
     Route: 048
     Dates: end: 20190204
  3. LYMECYCLINE [Concomitant]
     Active Substance: LYMECYCLINE
     Dosage: UNK

REACTIONS (2)
  - Feeling abnormal [Unknown]
  - Depression suicidal [Unknown]

NARRATIVE: CASE EVENT DATE: 20190202
